FAERS Safety Report 8972670 (Version 1)
Quarter: 2012Q4

REPORT INFORMATION
  Report Type: 
  Country: CH (occurrence: CH)
  Receive Date: 20121218
  Receipt Date: 20121218
  Transmission Date: 20130627
  Serious: Yes (Other)
  Sender: FDA-Public Use
  Company Number: CH-ELI_LILLY_AND_COMPANY-CH201212004152

PATIENT
  Age: 61 Year
  Sex: Male

DRUGS (3)
  1. ZYPREXA [Suspect]
     Indication: BIPOLAR DISORDER
  2. AMITRIPTYLIN [Concomitant]
  3. LORAZEPAM [Concomitant]

REACTIONS (5)
  - Bruxism [Recovering/Resolving]
  - Oromandibular dystonia [Unknown]
  - Dysarthria [Recovering/Resolving]
  - Tooth disorder [Unknown]
  - Tooth loss [Unknown]
